FAERS Safety Report 10367289 (Version 1)
Quarter: 2014Q3

REPORT INFORMATION
  Report Type: Spontaneous
  Country: US (occurrence: None)
  Receive Date: 20140805
  Receipt Date: 20140805
  Transmission Date: 20150326
  Serious: No
  Sender: FDA-Public Use
  Company Number: None

PATIENT
  Age: 64 Year
  Sex: Male
  Weight: 83.92 kg

DRUGS (1)
  1. CHANTIX [Suspect]
     Active Substance: VARENICLINE TARTRATE
     Indication: SMOKING CESSATION THERAPY
     Dosage: 2 PILLS, TWICE DAILY, TAKEN BY MOUTH
     Route: 048
     Dates: start: 20140620, end: 20140804

REACTIONS (3)
  - Abnormal dreams [None]
  - Constipation [None]
  - Poor quality sleep [None]
